FAERS Safety Report 20702627 (Version 2)
Quarter: 2022Q3

REPORT INFORMATION
  Report Type: Spontaneous
  Country: CA (occurrence: None)
  Receive Date: 20220412
  Receipt Date: 20220819
  Transmission Date: 20221027
  Serious: Yes (Hospitalization, Other)
  Sender: FDA-Public Use
  Company Number: CA-ROCHE-3068875

PATIENT
  Age: 75 Year
  Sex: Male

DRUGS (43)
  1. RITUXIMAB [Suspect]
     Active Substance: RITUXIMAB
     Indication: Microscopic polyangiitis
     Route: 042
  2. RITUXIMAB [Suspect]
     Active Substance: RITUXIMAB
     Indication: Central nervous system vasculitis
     Route: 042
  3. RITUXIMAB [Suspect]
     Active Substance: RITUXIMAB
     Indication: Vasculitis
  4. ADVAIR HFA [Concomitant]
     Active Substance: FLUTICASONE PROPIONATE\SALMETEROL XINAFOATE
  5. ACETAMINOPHEN [Concomitant]
     Active Substance: ACETAMINOPHEN
  6. ALENDRONATE SODIUM [Concomitant]
     Active Substance: ALENDRONATE SODIUM
  7. AMITRIPTYLINE [Concomitant]
     Active Substance: AMITRIPTYLINE
  8. AMLODIPINE [Concomitant]
     Active Substance: AMLODIPINE BESYLATE
     Route: 065
  9. ATIVAN [Concomitant]
     Active Substance: LORAZEPAM
  10. BENADRYL [Concomitant]
     Active Substance: DIPHENHYDRAMINE HYDROCHLORIDE
  11. CALCIUM [Concomitant]
     Active Substance: CALCIUM
  12. CLONAZEPAM [Concomitant]
     Active Substance: CLONAZEPAM
  13. CANNABIS SATIVA FLOWERING TOP [Concomitant]
     Active Substance: CANNABIS SATIVA FLOWERING TOP
  14. DOMPERIDONE [Concomitant]
     Active Substance: DOMPERIDONE
  15. ESCITALOPRAM [Concomitant]
     Active Substance: ESCITALOPRAM OXALATE
  16. IRON [Concomitant]
     Active Substance: IRON
  17. FUSIDATE SODIUM [Concomitant]
     Active Substance: FUSIDATE SODIUM
  18. GABAPENTIN [Concomitant]
     Active Substance: GABAPENTIN
  19. HYDRALAZINE [Concomitant]
     Active Substance: HYDRALAZINE HYDROCHLORIDE
  20. HYDROMORPHONE [Concomitant]
     Active Substance: HYDROMORPHONE
  21. IRBESARTAN [Concomitant]
     Active Substance: IRBESARTAN
  22. LANSOPRAZOLE [Concomitant]
     Active Substance: LANSOPRAZOLE
  23. LEVOTHYROXINE [Concomitant]
     Active Substance: LEVOTHYROXINE
  24. METOPROLOL [Concomitant]
     Active Substance: METOPROLOL
  25. NITROGLYCERIN [Concomitant]
     Active Substance: NITROGLYCERIN
  26. PANTOPRAZOLE [Concomitant]
     Active Substance: PANTOPRAZOLE
  27. OLMESARTAN [Concomitant]
     Active Substance: OLMESARTAN
  28. PREDNISONE [Concomitant]
     Active Substance: PREDNISONE
  29. RANITIDINE [Concomitant]
     Active Substance: RANITIDINE
  30. CYANOCOBALAMIN [Concomitant]
     Active Substance: CYANOCOBALAMIN
  31. DARBEPOETIN ALFA [Concomitant]
     Active Substance: DARBEPOETIN ALFA
  32. FOLIC ACID [Concomitant]
     Active Substance: FOLIC ACID
  33. KEPPRA [Concomitant]
     Active Substance: LEVETIRACETAM
  34. LEVETIRACETAM [Concomitant]
     Active Substance: LEVETIRACETAM
  35. NICOTINAMIDE [Concomitant]
     Active Substance: NIACINAMIDE
  36. PANTOTHENATE SODIUM [Concomitant]
  37. PYRIDOXINE HYDROCHLORIDE [Concomitant]
     Active Substance: PYRIDOXINE HYDROCHLORIDE
  38. RIBOFLAVIN [Concomitant]
     Active Substance: RIBOFLAVIN
  39. SENNA [Concomitant]
     Active Substance: SENNA LEAF\SENNOSIDES\SENNOSIDES A AND B
  40. SEPTRA [Concomitant]
     Active Substance: SULFAMETHOXAZOLE\TRIMETHOPRIM
  41. SULFAMETHOXAZOLE [Concomitant]
     Active Substance: SULFAMETHOXAZOLE
  42. THIAMINE MONONITRATE [Concomitant]
     Active Substance: THIAMINE MONONITRATE
  43. VITAMIN C [Concomitant]
     Active Substance: ASCORBIC ACID

REACTIONS (11)
  - Delirium [Not Recovered/Not Resolved]
  - Food refusal [Not Recovered/Not Resolved]
  - Off label use [Unknown]
  - Blood pressure diastolic abnormal [Unknown]
  - Blood pressure fluctuation [Unknown]
  - Blood pressure increased [Unknown]
  - Blood pressure systolic abnormal [Unknown]
  - Blood pressure systolic increased [Unknown]
  - Heart rate decreased [Unknown]
  - Oxygen saturation decreased [Unknown]
  - Vascular device occlusion [Unknown]
